FAERS Safety Report 6242102-3 (Version None)
Quarter: 2009Q2

REPORT INFORMATION
  Report Type: 
  Country: None (occurrence: None)
  Receive Date: 20090624
  Receipt Date: 20090617
  Transmission Date: 20091009
  Serious: Yes (Other)
  Sender: FDA-Public Use
  Company Number: US-JNJCH-2009016711

PATIENT
  Age: 5 Month
  Sex: Female
  Weight: 5.9 kg

DRUGS (1)
  1. DESITIN CREAMY DIAPER RASH [Suspect]
     Indication: DERMATITIS DIAPER
     Dosage: TEXT:UNSPECIFIED ONCE
     Route: 061

REACTIONS (3)
  - APPLICATION SITE BURN [None]
  - SKIN DISCOLOURATION [None]
  - SKIN EXFOLIATION [None]
